FAERS Safety Report 5845949-8 (Version None)
Quarter: 2008Q3

REPORT INFORMATION
  Report Type: 
  Country: None (occurrence: None)
  Receive Date: 20080813
  Receipt Date: 20080807
  Transmission Date: 20090109
  Serious: Yes (Other)
  Sender: FDA-Public Use
  Company Number: 2008AL008216

PATIENT
  Age: 67 Year
  Sex: Female
  Weight: 54.4316 kg

DRUGS (2)
  1. DIGOXIN [Suspect]
     Indication: TACHYCARDIA
     Dosage: 0.125MG, DAILY, PO
     Route: 048
     Dates: start: 20080408, end: 20080512
  2. DIGOXIN [Suspect]
     Indication: CARDIAC FAILURE CONGESTIVE
     Dosage: 0.125MG, DAILY, PO
     Route: 048
     Dates: start: 20070415, end: 20080608

REACTIONS (3)
  - ATRIOVENTRICULAR BLOCK [None]
  - TACHYCARDIA [None]
  - THERAPEUTIC AGENT TOXICITY [None]
